FAERS Safety Report 16759587 (Version 1)
Quarter: 2019Q4

REPORT INFORMATION
  Report Type: Spontaneous
  Country: US (occurrence: US)
  Receive Date: 20190830
  Receipt Date: 20190830
  Transmission Date: 20200122
  Serious: Yes (Hospitalization, Disabling)
  Sender: FDA-Public Use
  Company Number: None

PATIENT
  Age: 42 Year
  Sex: Female
  Weight: 74.25 kg

DRUGS (5)
  1. PROPRANOLOL [Concomitant]
     Active Substance: PROPRANOLOL HYDROCHLORIDE
  2. ESTRADIOL. [Concomitant]
     Active Substance: ESTRADIOL
  3. AJOVY [Suspect]
     Active Substance: FREMANEZUMAB-VFRM
     Indication: MIGRAINE
     Dates: start: 20190103, end: 20190710
  4. OMEPRAZOLE. [Concomitant]
     Active Substance: OMEPRAZOLE
  5. VIT D [Concomitant]
     Active Substance: VITAMIN D NOS

REACTIONS (11)
  - Fatigue [None]
  - Nerve injury [None]
  - Cognitive disorder [None]
  - Balance disorder [None]
  - Speech disorder [None]
  - Dizziness [None]
  - Hypoaesthesia [None]
  - Amnesia [None]
  - Tremor [None]
  - Weight increased [None]
  - Walking aid user [None]

NARRATIVE: CASE EVENT DATE: 20190531
